FAERS Safety Report 4956807-5 (Version None)
Quarter: 2006Q1

REPORT INFORMATION
  Report Type: 
  Country: None (occurrence: None)
  Receive Date: 20060323
  Receipt Date: 20060307
  Transmission Date: 20060701
  Serious: Yes (Death, Hospitalization)
  Sender: FDA-Public Use
  Company Number: 223201

PATIENT
  Age: 56 Year
  Sex: Male

DRUGS (2)
  1. AVASTIN [Suspect]
     Indication: RECTAL CANCER
     Dosage: 25 MG/ML
     Dates: start: 20060115
  2. IRINOTECAN HCL [Concomitant]

REACTIONS (10)
  - ANOREXIA [None]
  - BLOOD CULTURE POSITIVE [None]
  - DEHYDRATION [None]
  - ESCHERICHIA INFECTION [None]
  - HAEMORRHAGIC INFARCTION [None]
  - ILEUS [None]
  - KLEBSIELLA INFECTION [None]
  - MALAISE [None]
  - PLATELET COUNT DECREASED [None]
  - WHITE BLOOD CELL COUNT DECREASED [None]
